FAERS Safety Report 4300761-6 (Version None)
Quarter: 2004Q1

REPORT INFORMATION
  Report Type: 
  Country: None (occurrence: None)
  Receive Date: 20040218
  Receipt Date: 20040205
  Transmission Date: 20041129
  Serious: Yes (Other)
  Sender: FDA-Public Use
  Company Number: US-JNJFOC-20030702985

PATIENT
  Age: 34 Year
  Sex: Female
  Weight: 72.5755 kg

DRUGS (12)
  1. REMICADE [Suspect]
     Indication: RHEUMATOID ARTHRITIS
     Dosage: SEE IMAGE (THREE INFUSIONS)
     Dates: start: 20020421
  2. REMICADE [Suspect]
     Indication: RHEUMATOID ARTHRITIS
     Dosage: SEE IMAGE (THREE INFUSIONS)
     Dates: start: 20020801
  3. REMICADE [Suspect]
     Indication: RHEUMATOID ARTHRITIS
     Dosage: SEE IMAGE (THREE INFUSIONS)
     Dates: start: 20020917
  4. ARAVA [Concomitant]
  5. PREDNISONE [Concomitant]
  6. ACIPHEX [Concomitant]
  7. VIOXX [Concomitant]
  8. ZYRTEC [Concomitant]
  9. CYTOTEC [Concomitant]
  10. TYLENOL [Concomitant]
  11. SOLU-MEDROL [Concomitant]
  12. BENADRYL [Concomitant]

REACTIONS (19)
  - BLOOD PRESSURE INCREASED [None]
  - CUSHINGOID [None]
  - DIARRHOEA [None]
  - DYSPNOEA [None]
  - FEELING ABNORMAL [None]
  - HEART RATE IRREGULAR [None]
  - INFLUENZA LIKE ILLNESS [None]
  - INFUSION RELATED REACTION [None]
  - LUPUS-LIKE SYNDROME [None]
  - OEDEMA PERIPHERAL [None]
  - PAIN [None]
  - PAIN IN EXTREMITY [None]
  - PRURITUS [None]
  - PULMONARY HYPERTENSION [None]
  - RASH [None]
  - TACHYCARDIA [None]
  - VASCULITIS [None]
  - WEIGHT INCREASED [None]
  - WHEEZING [None]
